FAERS Safety Report 17005902 (Version 1)
Quarter: 2019Q4

REPORT INFORMATION
  Report Type: Spontaneous
  Country: CA (occurrence: CA)
  Receive Date: 20191107
  Receipt Date: 20191107
  Transmission Date: 20200122
  Serious: Yes (Life-Threatening, Hospitalization, Other)
  Sender: FDA-Public Use
  Company Number: CA-TEVA-2019-CA-1050480

PATIENT
  Age: 23 Year
  Sex: Female

DRUGS (3)
  1. CLINDAMYCIN HYDROCHOLRIDE [Suspect]
     Active Substance: CLINDAMYCIN HYDROCHLORIDE
     Indication: ANTIBIOTIC PROPHYLAXIS
  2. AMOXICILLIN. [Concomitant]
     Active Substance: AMOXICILLIN
     Indication: ANTIBIOTIC PROPHYLAXIS
     Route: 065
  3. CLINDAMYCIN HYDROCHOLRIDE [Suspect]
     Active Substance: CLINDAMYCIN HYDROCHLORIDE
     Indication: PRODUCT USED FOR UNKNOWN INDICATION
     Route: 065

REACTIONS (13)
  - Oropharyngeal pain [Recovering/Resolving]
  - Stevens-Johnson syndrome [Recovering/Resolving]
  - Pyrexia [Recovering/Resolving]
  - Rash macular [Recovering/Resolving]
  - Noninfective conjunctivitis [Recovering/Resolving]
  - Alanine aminotransferase increased [Recovering/Resolving]
  - Conjunctival hyperaemia [Recovering/Resolving]
  - Photophobia [Recovering/Resolving]
  - Visual acuity reduced [Recovering/Resolving]
  - Keratitis [Recovering/Resolving]
  - Headache [Recovering/Resolving]
  - Oral disorder [Recovering/Resolving]
  - White blood cell count decreased [Recovering/Resolving]
